FAERS Safety Report 8539812-1 (Version None)
Quarter: 2012Q3

REPORT INFORMATION
  Report Type: 
  Country: None (occurrence: None)
  Receive Date: 20120726
  Receipt Date: 20120716
  Transmission Date: 20120928
  Serious: Yes (Other)
  Sender: FDA-Public Use
  Company Number: US-MYLANLABS-2012S1014507

PATIENT
  Age: 44 Year
  Sex: Female
  Weight: 63.5 kg

DRUGS (1)
  1. SOTRADECOL [Suspect]
     Indication: SPIDER VEIN
     Route: 042
     Dates: start: 20120612, end: 20120612

REACTIONS (6)
  - MYALGIA [None]
  - HYPOAESTHESIA [None]
  - RESTLESS LEGS SYNDROME [None]
  - PARAESTHESIA [None]
  - MUSCLE SPASMS [None]
  - FORMICATION [None]
